FAERS Safety Report 20226268 (Version 1)
Quarter: 2021Q4

REPORT INFORMATION
  Report Type: Other
  Country: IN (occurrence: None)
  Receive Date: 20211224
  Receipt Date: 20211224
  Transmission Date: 20220304
  Serious: Yes (Death, Other)
  Sender: FDA-Public Use
  Company Number: IN-ROCHE-2834073

PATIENT
  Age: 55 Year
  Sex: Female

DRUGS (2)
  1. PERJETA [Suspect]
     Active Substance: PERTUZUMAB
     Indication: Breast cancer metastatic
     Dosage: ONGOING: NO
     Route: 042
     Dates: start: 20200124, end: 20201113
  2. KADCYLA [Suspect]
     Active Substance: ADO-TRASTUZUMAB EMTANSINE
     Indication: Breast cancer metastatic
     Route: 042
     Dates: start: 20201226

REACTIONS (2)
  - Epistaxis [Unknown]
  - Death [Fatal]

NARRATIVE: CASE EVENT DATE: 20211216
